FAERS Safety Report 4292283-6 (Version None)
Quarter: 2004Q1

REPORT INFORMATION
  Report Type: 
  Country: None (occurrence: None)
  Receive Date: 20040211
  Receipt Date: 20030616
  Transmission Date: 20041129
  Serious: Yes (Hospitalization)
  Sender: FDA-Public Use
  Company Number: BR-ROCHE-340137

PATIENT
  Age: 29 Year
  Sex: Female
  Weight: 57 kg

DRUGS (7)
  1. DACLIZUMAB [Suspect]
     Route: 042
     Dates: start: 20030502, end: 20030503
  2. DACLIZUMAB [Suspect]
     Route: 042
     Dates: start: 20030519, end: 20030626
  3. MYCOPHENOLATE MOFETIL [Suspect]
     Dosage: TAKEN EVERY 12 HOURS (= BID).
     Route: 048
     Dates: start: 20030502
  4. TACROLIMUS [Suspect]
     Dosage: TAKEN EVERY 12 HOURS (= BID)
     Route: 048
     Dates: start: 20030502
  5. TACROLIMUS [Suspect]
     Route: 048
  6. PREDNISONE [Suspect]
     Route: 048
  7. RANITIDINE [Concomitant]
     Dosage: TAKEN EVERY 12 HOURS (= BID).
     Route: 048
     Dates: start: 20030503

REACTIONS (2)
  - HERPES SIMPLEX [None]
  - HERPES ZOSTER [None]
